FAERS Safety Report 22292940 (Version 1)
Quarter: 2023Q2

REPORT INFORMATION
  Report Type: Report from Study
  Country: US (occurrence: US)
  Receive Date: 20230508
  Receipt Date: 20230508
  Transmission Date: 20230721
  Serious: Yes (Other)
  Sender: FDA-Public Use
  Company Number: US-ABBVIE-4754298

PATIENT
  Sex: Male

DRUGS (1)
  1. RINVOQ [Suspect]
     Active Substance: UPADACITINIB
     Indication: Product used for unknown indication
     Route: 048
     Dates: start: 20221019

REACTIONS (7)
  - Neoplasm [Unknown]
  - Neoplasm malignant [Unknown]
  - Bone lesion [Unknown]
  - Surgery [Unknown]
  - Back pain [Unknown]
  - Vertebral lesion [Unknown]
  - Pain [Unknown]
